FAERS Safety Report 11755257 (Version 2)
Quarter: 2015Q4

REPORT INFORMATION
  Report Type: Report from Study
  Country: NL (occurrence: NL)
  Receive Date: 20151119
  Receipt Date: 20151208
  Transmission Date: 20160304
  Serious: Yes (Death, Other)
  Sender: FDA-Public Use
  Company Number: US-ASTRAZENECA-2015SF11905

PATIENT
  Age: 299 Day
  Sex: Male

DRUGS (1)
  1. SYNAGIS [Suspect]
     Active Substance: PALIVIZUMAB
     Indication: PRODUCT USED FOR UNKNOWN INDICATION
     Dosage: (100MG).47
     Route: 030
     Dates: start: 2014, end: 2015

REACTIONS (6)
  - Bronchitis [Unknown]
  - Circulatory collapse [Fatal]
  - Bacteraemia [Unknown]
  - Viral myocarditis [Unknown]
  - Product quality issue [Unknown]
  - Death [Fatal]

NARRATIVE: CASE EVENT DATE: 20150420
